FAERS Safety Report 8359342-X (Version None)
Quarter: 2012Q2

REPORT INFORMATION
  Report Type: 
  Country: None (occurrence: None)
  Receive Date: 20120515
  Receipt Date: 20120507
  Transmission Date: 20120825
  Serious: No
  Sender: FDA-Public Use
  Company Number: US-PFIZER INC-2011300661

PATIENT
  Sex: Female
  Weight: 67.574 kg

DRUGS (3)
  1. TIROSINT [Suspect]
     Dosage: 25 UG, UNK
     Dates: start: 20111103
  2. LEVOXYL [Suspect]
     Indication: HYPOTHYROIDISM
     Dosage: 25 UG, 1X/DAY
     Route: 048
     Dates: start: 20111001, end: 20111001
  3. SYNTHROID [Suspect]
     Indication: AUTOIMMUNE THYROIDITIS
     Dosage: 25 UG, UNK
     Route: 048
     Dates: start: 20110101, end: 20111013

REACTIONS (5)
  - ABDOMINAL DISTENSION [None]
  - ABDOMINAL PAIN [None]
  - ABDOMINAL DISCOMFORT [None]
  - THIRST [None]
  - DYSGEUSIA [None]
